FAERS Safety Report 9663837 (Version 3)
Quarter: 2014Q2

REPORT INFORMATION
  Report Type: Spontaneous
  Country: CA (occurrence: CA)
  Receive Date: 20131101
  Receipt Date: 20140529
  Transmission Date: 20141212
  Serious: Yes (Hospitalization, Other)
  Sender: FDA-Public Use
  Company Number: CA-AMGEN-CANSP2013076766

PATIENT
  Age: 67 Year
  Sex: Male
  Weight: 136 kg

DRUGS (2)
  1. ENBREL [Suspect]
     Indication: PSORIASIS
     Dosage: 50 MG, 2 TIMES/WK
     Route: 065
     Dates: start: 20120525, end: 201405
  2. ENBREL [Suspect]
     Indication: RHEUMATOID ARTHRITIS

REACTIONS (6)
  - Hepatomegaly [Recovering/Resolving]
  - Renal disorder [Recovering/Resolving]
  - Nephrolithiasis [Recovering/Resolving]
  - Cardiac failure [Recovering/Resolving]
  - Cystitis [Recovering/Resolving]
  - Psoriasis [Recovering/Resolving]
